FAERS Safety Report 7937615-X (Version None)
Quarter: 2011Q4

REPORT INFORMATION
  Report Type: 
  Country: None (occurrence: None)
  Receive Date: 20111123
  Receipt Date: 20111117
  Transmission Date: 20120403
  Serious: Yes (Hospitalization)
  Sender: FDA-Public Use
  Company Number: DE-ABBOTT-11P-062-0875656-00

PATIENT
  Sex: Female

DRUGS (1)
  1. HUMIRA [Suspect]
     Indication: PSORIATIC ARTHROPATHY
     Route: 058
     Dates: start: 20110113, end: 20111022

REACTIONS (6)
  - BURNING SENSATION [None]
  - SKIN DISCOLOURATION [None]
  - ERYTHEMA [None]
  - DYSSTASIA [None]
  - ANTINUCLEAR ANTIBODY INCREASED [None]
  - SYSTEMIC LUPUS ERYTHEMATOSUS [None]
